FAERS Safety Report 7408213-1 (Version None)
Quarter: 2011Q2

REPORT INFORMATION
  Report Type: 
  Country: None (occurrence: None)
  Receive Date: 20110412
  Receipt Date: 20110221
  Transmission Date: 20111010
  Serious: Yes (Other)
  Sender: FDA-Public Use
  Company Number: US-BAYER-200922409NA

PATIENT
  Sex: Male

DRUGS (10)
  1. TRASYLOL [Suspect]
     Indication: CORONARY ARTERY BYPASS
     Dosage: 100 CC THEN 25 CC/HOUR
     Route: 042
     Dates: start: 20030709, end: 20030709
  2. AVANDIA [Concomitant]
     Dosage: 80 MG, QD
     Route: 048
     Dates: start: 20030101
  3. ISOSORBIDE MONONITRATE [Concomitant]
     Dosage: 100 MG, UNK
     Route: 048
     Dates: start: 20030101
  4. TOPROL-XL [Concomitant]
     Dosage: 100 MG, QD
     Route: 048
     Dates: start: 20030101
  5. LIPITOR [Concomitant]
     Dosage: 40 MG, QD
     Route: 048
     Dates: start: 20030101
  6. NITROGLYCERIN [Concomitant]
     Dosage: 0.4 MG AS NEEDED
     Route: 048
     Dates: start: 20030101
  7. AVAPRO [Concomitant]
     Dosage: 300 MG, QD
     Route: 048
     Dates: start: 20030101
  8. PLAVIX [Concomitant]
     Dosage: 75 MG, QD
     Route: 048
     Dates: start: 20030101
  9. TRASYLOL [Suspect]
     Dosage: UNK
     Dates: start: 20030709, end: 20030709
  10. ZETIA [Concomitant]
     Dosage: 10 MG, QD
     Route: 048
     Dates: start: 20030101

REACTIONS (12)
  - MULTI-ORGAN FAILURE [None]
  - PAIN [None]
  - EMOTIONAL DISTRESS [None]
  - FEAR [None]
  - ANXIETY [None]
  - ANHEDONIA [None]
  - RENAL FAILURE [None]
  - STRESS [None]
  - UNEVALUABLE EVENT [None]
  - RENAL IMPAIRMENT [None]
  - INJURY [None]
  - RENAL INJURY [None]
